FAERS Safety Report 11756010 (Version 2)
Quarter: 2016Q1

REPORT INFORMATION
  Report Type: Spontaneous
  Country: CA (occurrence: CA)
  Receive Date: 20151119
  Receipt Date: 20160119
  Transmission Date: 20160525
  Serious: Yes (Other)
  Sender: FDA-Public Use
  Company Number: CA-IMPAX LABORATORIES, INC-2015-IPXL-01166

PATIENT
  Sex: Male

DRUGS (6)
  1. HYDROCORTISONE. [Concomitant]
     Active Substance: HYDROCORTISONE
     Indication: HYPOTENSION
  2. ADRENACLICK [Suspect]
     Active Substance: EPINEPHRINE
     Dosage: 0.10 ?G/KG/MIN
     Route: 065
  3. NACL [Concomitant]
     Active Substance: SODIUM CHLORIDE
     Indication: HYPOTENSION
     Dosage: 10 ML/KG
     Route: 065
  4. DOPAMINE [Concomitant]
     Active Substance: DOPAMINE\DOPAMINE HYDROCHLORIDE
     Indication: HYPOTENSION
     Dosage: 14 ?G/KG/MIN
     Route: 065
  5. DOBUTAMINE [Concomitant]
     Active Substance: DOBUTAMINE\DOBUTAMINE HYDROCHLORIDE
     Indication: HYPOTENSION
     Dosage: 10,000 MG/KG/MIN
  6. NITRIC OXIDE. [Concomitant]
     Active Substance: NITRIC OXIDE
     Indication: PULMONARY HYPERTENSION
     Route: 065

REACTIONS (2)
  - Blood lactic acid increased [Recovering/Resolving]
  - Condition aggravated [Recovering/Resolving]
